FAERS Safety Report 6077892-6 (Version None)
Quarter: 2009Q1

REPORT INFORMATION
  Report Type: 
  Country: None (occurrence: None)
  Receive Date: 20090213
  Receipt Date: 20090205
  Transmission Date: 20090719
  Serious: Yes (Other)
  Sender: FDA-Public Use
  Company Number: US-PFIZER INC-2009167034

PATIENT
  Sex: Female
  Weight: 63.492 kg

DRUGS (6)
  1. LYRICA [Suspect]
     Indication: FIBROMYALGIA
     Dosage: UNK
     Dates: start: 20080101, end: 20090127
  2. VOLTAREN [Concomitant]
     Dosage: UNK
  3. AMITIZA [Concomitant]
     Dosage: UNK
  4. KADIAN ^ZENECA^ [Concomitant]
     Dosage: UNK
  5. ABILIFY [Concomitant]
     Dosage: UNK
  6. SYNTHROID [Concomitant]
     Dosage: UNK

REACTIONS (7)
  - DRUG HYPERSENSITIVITY [None]
  - FOLLICULITIS [None]
  - FURUNCLE [None]
  - PRURITUS [None]
  - PYREXIA [None]
  - UTERINE POLYP [None]
  - WOUND [None]
